FAERS Safety Report 7675762-0 (Version None)
Quarter: 2011Q3

REPORT INFORMATION
  Report Type: 
  Country: None (occurrence: None)
  Receive Date: 20110810
  Receipt Date: 20110614
  Transmission Date: 20111222
  Serious: Yes (Other)
  Sender: FDA-Public Use
  Company Number: PHHY2011DE53135

PATIENT
  Age: 35 Year
  Sex: Female

DRUGS (3)
  1. VFEND [Suspect]
     Dosage: 1XDF, 2X/DAY
  2. SANDIMMUNE [Suspect]
     Indication: IMMUNOSUPPRESSION
     Dosage: UNK
     Dates: end: 20100101
  3. RAPAMUNE [Suspect]
     Indication: PROPHYLAXIS AGAINST TRANSPLANT REJECTION
     Dosage: 0.8 MG DAILY
     Dates: start: 20100101

REACTIONS (6)
  - RENAL IMPAIRMENT [None]
  - PERIODONTITIS [None]
  - RESPIRATORY TRACT INFLAMMATION [None]
  - ABSCESS [None]
  - CELLULITIS [None]
  - LYMPHADENOPATHY [None]
